FAERS Safety Report 11831571 (Version 1)
Quarter: 2015Q4

REPORT INFORMATION
  Report Type: Spontaneous
  Country: US (occurrence: None)
  Receive Date: 20151211
  Receipt Date: 20151211
  Transmission Date: 20160305
  Serious: Yes (Life-Threatening, Hospitalization, Disabling)
  Sender: FDA-Public Use
  Company Number: None

PATIENT
  Age: 71 Year
  Sex: Male
  Weight: 58.97 kg

DRUGS (13)
  1. NYSTATIN. [Concomitant]
     Active Substance: NYSTATIN
  2. MYCOLOG [Concomitant]
     Active Substance: GRAMICIDIN\NEOMYCIN SULFATE\NYSTATIN\TRIAMCINOLONE ACETONIDE
  3. ONGLYZA [Concomitant]
     Active Substance: SAXAGLIPTIN HYDROCHLORIDE
  4. LEVOTHYROXINE. [Concomitant]
     Active Substance: LEVOTHYROXINE
  5. GLIMEPIRIDE. [Concomitant]
     Active Substance: GLIMEPIRIDE
  6. LOSARTAN. [Concomitant]
     Active Substance: LOSARTAN
  7. INVOKANA [Suspect]
     Active Substance: CANAGLIFLOZIN
     Indication: DIABETES MELLITUS
     Dosage: 300 MG/1 TABLET 100 MG/3 TABLE ONCE DAILY TAKEN BY MOUTH
     Route: 048
     Dates: end: 20151210
  8. CELEBREX [Concomitant]
     Active Substance: CELECOXIB
  9. CIALIS [Concomitant]
     Active Substance: TADALAFIL
  10. ZETIA [Concomitant]
     Active Substance: EZETIMIBE
  11. CIMETIDINE [Concomitant]
     Active Substance: CIMETIDINE
  12. ASPIRIN. [Concomitant]
     Active Substance: ASPIRIN
  13. VYTORIN [Concomitant]
     Active Substance: EZETIMIBE\SIMVASTATIN

REACTIONS (5)
  - Diabetic ketoacidosis [None]
  - Abdominal pain upper [None]
  - Dyspnoea [None]
  - Vomiting [None]
  - Influenza like illness [None]

NARRATIVE: CASE EVENT DATE: 20151204
